FAERS Safety Report 12582728 (Version 7)
Quarter: 2016Q4

REPORT INFORMATION
  Report Type: Report from Study
  Country: US (occurrence: US)
  Receive Date: 20160722
  Receipt Date: 20161028
  Transmission Date: 20170207
  Serious: Yes (Other)
  Sender: FDA-Public Use
  Company Number: US-JNJFOC-20160626628

PATIENT
  Sex: Male

DRUGS (13)
  1. ASPIRIN. [Concomitant]
     Active Substance: ASPIRIN
     Indication: CORONARY ARTERY BYPASS
  2. ATROVENT [Concomitant]
     Active Substance: IPRATROPIUM BROMIDE
  3. DIAZEPAM. [Concomitant]
     Active Substance: DIAZEPAM
     Indication: SLEEP DISORDER
     Dosage: PRN
  4. PRESERVISION [Concomitant]
     Active Substance: MINERALS\VITAMINS
  5. IMBRUVICA [Suspect]
     Active Substance: IBRUTINIB
     Indication: CHRONIC LYMPHOCYTIC LEUKAEMIA
     Route: 048
     Dates: start: 20160420
  6. VITAMIN D3 [Concomitant]
     Active Substance: CHOLECALCIFEROL
  7. CENTRUM SILVER [Concomitant]
     Active Substance: MINERALS\VITAMINS
  8. ASCORBIC ACID. [Concomitant]
     Active Substance: ASCORBIC ACID
  9. ATENOLOL. [Concomitant]
     Active Substance: ATENOLOL
  10. LEVOTHYROXINE. [Concomitant]
     Active Substance: LEVOTHYROXINE
  11. ATORVASTATIN [Concomitant]
     Active Substance: ATORVASTATIN
  12. LOPERAMIDE [Concomitant]
     Active Substance: LOPERAMIDE
  13. VESICARE [Concomitant]
     Active Substance: SOLIFENACIN SUCCINATE

REACTIONS (12)
  - Nephrolithiasis [Unknown]
  - Spinal pain [Not Recovered/Not Resolved]
  - Constipation [Unknown]
  - Chest pain [Not Recovered/Not Resolved]
  - Dyspnoea [Not Recovered/Not Resolved]
  - Hiatus hernia [Not Recovered/Not Resolved]
  - Cough [Unknown]
  - Painful respiration [Not Recovered/Not Resolved]
  - Abdominal distension [Not Recovered/Not Resolved]
  - Back pain [Not Recovered/Not Resolved]
  - Abdominal pain upper [Not Recovered/Not Resolved]
  - Spondylitis [Recovering/Resolving]

NARRATIVE: CASE EVENT DATE: 2016
